FAERS Safety Report 18114599 (Version 3)
Quarter: 2021Q3

REPORT INFORMATION
  Report Type: Spontaneous
  Country: US (occurrence: US)
  Receive Date: 20200805
  Receipt Date: 20210707
  Transmission Date: 20211014
  Serious: Yes (Other)
  Sender: FDA-Public Use
  Company Number: US-GLAXOSMITHKLINE-US2020151115

PATIENT
  Sex: Male

DRUGS (14)
  1. ZANTAC [Suspect]
     Active Substance: RANITIDINE HYDROCHLORIDE
     Indication: HYPERCHLORHYDRIA
     Dosage: 75 MG BOTH, 1?2X DAILY
     Route: 065
     Dates: start: 199201, end: 202002
  2. RANITIDINE. [Suspect]
     Active Substance: RANITIDINE
     Indication: GASTRIC ULCER
     Dosage: 150 MG, QD, 1?2X DAILY
     Route: 065
     Dates: start: 199701, end: 202002
  3. ZANTAC [Suspect]
     Active Substance: RANITIDINE HYDROCHLORIDE
     Dosage: UNK
     Route: 065
  4. ZANTAC [Suspect]
     Active Substance: RANITIDINE HYDROCHLORIDE
     Indication: HYPERCHLORHYDRIA
     Dosage: 75 MG BOTH, 1?2X DAILY
     Route: 065
     Dates: start: 199201, end: 202002
  5. RANITIDINE CAPSULE [Suspect]
     Active Substance: RANITIDINE
     Indication: HYPERCHLORHYDRIA
     Dosage: 75 MG BOTH, 1?2X DAILY
     Route: 065
     Dates: start: 199201, end: 202002
  6. RANITIDINE. [Suspect]
     Active Substance: RANITIDINE
     Indication: HYPERCHLORHYDRIA
     Dosage: 75 MG BOTH, 1?2X DAILY
     Route: 065
     Dates: start: 199701, end: 202002
  7. RANITIDINE. [Suspect]
     Active Substance: RANITIDINE
     Route: 065
  8. RANITIDINE. [Suspect]
     Active Substance: RANITIDINE
     Indication: GASTRIC ULCER
     Dosage: 150 MG, QD, 1?2X DAILY
     Route: 065
     Dates: start: 199701, end: 202002
  9. RANITIDINE CAPSULE [Suspect]
     Active Substance: RANITIDINE
     Indication: GASTRIC ULCER
     Dosage: 150 MG, QD, 1?2X DAILY
     Route: 065
     Dates: start: 199201, end: 202002
  10. ZANTAC [Suspect]
     Active Substance: RANITIDINE HYDROCHLORIDE
     Indication: HYPERCHLORHYDRIA
     Dosage: 75 MG BOTH, 1?2X DAILY
     Route: 065
     Dates: start: 199201, end: 202002
  11. ZANTAC [Suspect]
     Active Substance: RANITIDINE HYDROCHLORIDE
     Indication: GASTRIC ULCER
     Dosage: 150 MG, QD, 1?2X DAILY
     Route: 065
     Dates: start: 199201, end: 202002
  12. ZANTAC [Suspect]
     Active Substance: RANITIDINE HYDROCHLORIDE
     Indication: GASTRIC ULCER
     Dosage: 150 MG, QD, 1?2X DAILY
     Route: 065
     Dates: start: 199201, end: 202002
  13. ZANTAC [Suspect]
     Active Substance: RANITIDINE HYDROCHLORIDE
     Indication: GASTRIC ULCER
     Dosage: 150 MG, QD, 1?2X DAILY
     Route: 065
     Dates: start: 199201, end: 202002
  14. RANITIDINE. [Suspect]
     Active Substance: RANITIDINE
     Indication: HYPERCHLORHYDRIA
     Dosage: 75 MG BOTH, 1?2X DAILY
     Route: 065
     Dates: start: 199701, end: 202002

REACTIONS (2)
  - Renal cancer [Unknown]
  - Prostate cancer [Unknown]
